FAERS Safety Report 25582493 (Version 1)
Quarter: 2025Q3

REPORT INFORMATION
  Report Type: Spontaneous
  Country: US (occurrence: US)
  Receive Date: 20250720
  Receipt Date: 20250720
  Transmission Date: 20251021
  Serious: No
  Sender: DR REDDYS
  Company Number: US-DRL-USA-USA/2025/07/010526

PATIENT
  Age: 79 Year
  Sex: Female

DRUGS (4)
  1. OFLOXACIN [Suspect]
     Active Substance: OFLOXACIN
     Indication: Granuloma annulare
  2. RIFAMPIN [Concomitant]
     Active Substance: RIFAMPIN
     Indication: Granuloma annulare
  3. HYDROXYCHLOROQUINE [Concomitant]
     Active Substance: HYDROXYCHLOROQUINE
     Indication: Granuloma annulare
  4. MINOCYCLINE [Concomitant]
     Active Substance: MINOCYCLINE HYDROCHLORIDE
     Indication: Granuloma annulare

REACTIONS (1)
  - Drug ineffective for unapproved indication [Unknown]
